FAERS Safety Report 21320917 (Version 1)
Quarter: 2022Q3

REPORT INFORMATION
  Report Type: Report from Study
  Country: AR (occurrence: AR)
  Receive Date: 20220912
  Receipt Date: 20220912
  Transmission Date: 20221027
  Serious: Yes (Other)
  Sender: FDA-Public Use
  Company Number: AR-NOVARTISPH-NVSC2022AR204689

PATIENT
  Sex: Female

DRUGS (1)
  1. ENTRESTO [Suspect]
     Active Substance: SACUBITRIL\VALSARTAN
     Indication: Cardiac failure
     Dosage: 50 MG (1 OF 50 MG DAILY) (HALF IN THE MORNING AND HALF IN THE AFTERNOON)
     Route: 065

REACTIONS (3)
  - Pulmonary oedema [Unknown]
  - Bronchitis [Unknown]
  - Wrong technique in product usage process [Unknown]
